FAERS Safety Report 9371842 (Version 1)
Quarter: 2013Q2

REPORT INFORMATION
  Report Type: Spontaneous
  Country: US (occurrence: US)
  Receive Date: 20130627
  Receipt Date: 20130627
  Transmission Date: 20140414
  Serious: Yes (Disabling)
  Sender: FDA-Public Use
  Company Number: US-PFIZER INC-2013190331

PATIENT
  Age: 47 Year
  Sex: Female
  Weight: 68.03 kg

DRUGS (3)
  1. EFFEXOR XR [Suspect]
     Indication: DEPRESSION
     Dosage: 75 MG, 1X/DAY
     Route: 048
     Dates: start: 1999
  2. ADVIL [Concomitant]
     Dosage: UNK, AS NEEDED
  3. TYLENOL [Concomitant]
     Dosage: UNK, AS NEEDED

REACTIONS (4)
  - Musculoskeletal disorder [Unknown]
  - Vertigo [Unknown]
  - Feeling abnormal [Unknown]
  - Fatigue [Unknown]
